FAERS Safety Report 4269364-6 (Version None)
Quarter: 2004Q1

REPORT INFORMATION
  Report Type: 
  Country: None (occurrence: None)
  Receive Date: 20040113
  Receipt Date: 20040109
  Transmission Date: 20041129
  Serious: Yes (Life-Threatening)
  Sender: FDA-Public Use
  Company Number: PHBS2004IN00644

PATIENT
  Age: 29 Year
  Sex: Female

DRUGS (2)
  1. VOVERAN [Suspect]
     Indication: LOCALISED OSTEOARTHRITIS
     Dosage: 75 MG/DAY
     Route: 030
  2. HYDROCORTISONE [Concomitant]
     Route: 048

REACTIONS (6)
  - BLOOD PRESSURE DECREASED [None]
  - COUGH [None]
  - DYSPNOEA [None]
  - NERVOUSNESS [None]
  - PRURITUS [None]
  - VOMITING [None]
